FAERS Safety Report 12377675 (Version 1)
Quarter: 2016Q2

REPORT INFORMATION
  Report Type: Spontaneous
  Country: US (occurrence: US)
  Receive Date: 20160517
  Receipt Date: 20160517
  Transmission Date: 20160815
  Serious: No
  Sender: FDA-Public Use
  Company Number: US-MALLINCKRODT-T201505753

PATIENT
  Age: 58 Year
  Sex: Female

DRUGS (2)
  1. H.P. ACTHAR [Suspect]
     Active Substance: CORTICOTROPIN
     Dosage: 80 UNITS, QD FOR 5 DAYS
     Route: 058
     Dates: start: 201509, end: 201509
  2. H.P. ACTHAR [Suspect]
     Active Substance: CORTICOTROPIN
     Indication: MULTIPLE SCLEROSIS
     Dosage: 80 UNITS, QD FOR 5 DAYS
     Route: 058
     Dates: start: 20150409, end: 201504

REACTIONS (1)
  - Fall [Unknown]

NARRATIVE: CASE EVENT DATE: 201512
